FAERS Safety Report 5461118-8 (Version None)
Quarter: 2007Q3

REPORT INFORMATION
  Report Type: 
  Country: None (occurrence: None)
  Receive Date: 20070920
  Receipt Date: 20070913
  Transmission Date: 20080115
  Serious: Yes (Hospitalization, Other)
  Sender: FDA-Public Use
  Company Number: PHEH2006US14149

PATIENT
  Sex: Male

DRUGS (7)
  1. CLOZARIL [Suspect]
     Indication: SCHIZOPHRENIA
     Dates: start: 19920101
  2. CLOZARIL [Suspect]
     Dosage: 700 MG, QD
     Route: 048
     Dates: start: 20050127, end: 20060829
  3. CLOZARIL [Suspect]
     Dosage: TAPERING UNK DOSE, QD
     Route: 048
     Dates: start: 20060801
  4. CLOZARIL [Suspect]
     Dosage: 100MG QAM, 350MG QHS
     Route: 046
     Dates: start: 20061005
  5. LITHIUM [Concomitant]
     Indication: DEPRESSION
     Dosage: 20 MG, QD
  6. SURFAK [Concomitant]
     Indication: CONSTIPATION
     Dates: start: 20040701
  7. LEXAPRO [Concomitant]
     Indication: DEPRESSION

REACTIONS (5)
  - ANTIPSYCHOTIC DRUG LEVEL INCREASED [None]
  - ANXIETY [None]
  - CONDITION AGGRAVATED [None]
  - HYPERTENSION [None]
  - PARANOIA [None]
